FAERS Safety Report 8079159-3 (Version None)
Quarter: 2012Q1

REPORT INFORMATION
  Report Type: 
  Country: None (occurrence: None)
  Receive Date: 20120128
  Receipt Date: 20110803
  Transmission Date: 20120608
  Serious: No
  Sender: FDA-Public Use
  Company Number: US-ABBOTT-11P-163-0843073-00

PATIENT
  Sex: Male
  Weight: 104.42 kg

DRUGS (7)
  1. TRAZODONE HCL [Concomitant]
     Indication: PRODUCT USED FOR UNKNOWN INDICATION
  2. HUMIRA [Suspect]
     Dosage: INTERMITTENT
     Dates: start: 20100101, end: 20110701
  3. BENADRYL [Concomitant]
     Indication: HYPERSENSITIVITY
  4. VALTREX [Concomitant]
     Indication: HERPES VIRUS INFECTION
  5. HUMIRA [Suspect]
     Dates: start: 20110701
  6. HUMIRA [Suspect]
     Indication: RHEUMATOID ARTHRITIS
     Dates: start: 20061101, end: 20100101
  7. PROVIGIL [Concomitant]
     Indication: SOMNOLENCE

REACTIONS (12)
  - MOBILITY DECREASED [None]
  - MUSCULOSKELETAL PAIN [None]
  - ECZEMA [None]
  - DRUG DOSE OMISSION [None]
  - INCORRECT DRUG ADMINISTRATION DURATION [None]
  - SINUSITIS [None]
  - INFECTION [None]
  - JOINT SWELLING [None]
  - RHEUMATOID NODULE [None]
  - PAIN [None]
  - DIARRHOEA [None]
  - DEVICE MALFUNCTION [None]
